FAERS Safety Report 19785136 (Version 1)
Quarter: 2021Q3

REPORT INFORMATION
  Report Type: Spontaneous
  Country: US (occurrence: US)
  Receive Date: 20210903
  Receipt Date: 20210903
  Transmission Date: 20211014
  Serious: No
  Sender: FDA-Public Use
  Company Number: None

PATIENT
  Sex: Female

DRUGS (10)
  1. MULTIVITAMIN [Concomitant]
     Active Substance: VITAMINS
  2. ALPRAZOLAM. [Concomitant]
     Active Substance: ALPRAZOLAM
  3. CHOLESTYRAMINE. [Concomitant]
     Active Substance: CHOLESTYRAMINE
  4. ONDANSETRON [Concomitant]
     Active Substance: ONDANSETRON
  5. METOPROLOL. [Concomitant]
     Active Substance: METOPROLOL
  6. OXYCODONE [Concomitant]
     Active Substance: OXYCODONE
  7. ASPIRIN. [Concomitant]
     Active Substance: ASPIRIN
  8. CAPECITABINE TABLETS [Suspect]
     Active Substance: CAPECITABINE
     Indication: RECTAL CANCER
     Dosage: OTHER FREQUENCY:BID 7D ON + 7D OFF;?
     Route: 048
  9. ATORVASTATIN [Concomitant]
     Active Substance: ATORVASTATIN
  10. FAMOTIDINE. [Concomitant]
     Active Substance: FAMOTIDINE

REACTIONS (2)
  - Gait inability [None]
  - Peripheral swelling [None]
